FAERS Safety Report 11440730 (Version 1)
Quarter: 2015Q3

REPORT INFORMATION
  Report Type: Spontaneous
  Country: US (occurrence: US)
  Receive Date: 20150821
  Receipt Date: 20150821
  Transmission Date: 20151125
  Serious: No
  Sender: FDA-Public Use
  Company Number: US-ELI_LILLY_AND_COMPANY-US200708003426

PATIENT
  Age: 40 Year
  Sex: Male

DRUGS (18)
  1. CYMBALTA [Suspect]
     Active Substance: DULOXETINE HYDROCHLORIDE
     Indication: NEURALGIA
     Dosage: 60 MG, UNK
     Route: 048
     Dates: start: 20070803
  2. LIPITOR [Concomitant]
     Active Substance: ATORVASTATIN CALCIUM
  3. AMBIEN [Concomitant]
     Active Substance: ZOLPIDEM TARTRATE
  4. FLEXERIL [Concomitant]
     Active Substance: CYCLOBENZAPRINE HYDROCHLORIDE
  5. TRICOR [Concomitant]
     Active Substance: FENOFIBRATE
  6. MULTIVITAMIN [Concomitant]
     Active Substance: VITAMINS
  7. OXYCODONE [Concomitant]
     Active Substance: OXYCODONE
  8. COLACE [Concomitant]
     Active Substance: DOCUSATE SODIUM
  9. HYDROCHLOROTHIAZIDE. [Concomitant]
     Active Substance: HYDROCHLOROTHIAZIDE
  10. ATENOLOL. [Concomitant]
     Active Substance: ATENOLOL
  11. BYETTA [Concomitant]
     Active Substance: EXENATIDE
  12. AMOXICILLIN. [Concomitant]
     Active Substance: AMOXICILLIN
  13. BABY ASPIRIN [Concomitant]
     Active Substance: ASPIRIN
  14. COZAAR [Concomitant]
     Active Substance: LOSARTAN POTASSIUM
  15. LANTUS [Concomitant]
     Active Substance: INSULIN GLARGINE
  16. NOVOLOG [Concomitant]
     Active Substance: INSULIN ASPART
  17. NASONEX [Concomitant]
     Active Substance: MOMETASONE FUROATE
  18. PHENERGAN [Concomitant]
     Active Substance: PROMETHAZINE HYDROCHLORIDE

REACTIONS (2)
  - Sinusitis [Not Recovered/Not Resolved]
  - Drug ineffective [Not Recovered/Not Resolved]

NARRATIVE: CASE EVENT DATE: 200708
